FAERS Safety Report 6261057-9 (Version None)
Quarter: 2009Q3

REPORT INFORMATION
  Report Type: 
  Country: None (occurrence: None)
  Receive Date: 20090709
  Receipt Date: 20090701
  Transmission Date: 20100115
  Serious: Yes (Other)
  Sender: FDA-Public Use
  Company Number: GB-RANBAXY-2008RR-19575

PATIENT
  Age: 69 Year
  Sex: Male

DRUGS (4)
  1. FLUCONAZOLE [Suspect]
     Indication: DEVICE RELATED INFECTION
  2. VANCOMYCIN [Suspect]
     Indication: DEVICE RELATED INFECTION
  3. MEROPENEM [Suspect]
     Indication: DEVICE RELATED INFECTION
  4. PRISTINAMYCIN [Suspect]
     Indication: DEVICE RELATED INFECTION

REACTIONS (1)
  - MULTIPLE-DRUG RESISTANCE [None]
